FAERS Safety Report 16056257 (Version 1)
Quarter: 2019Q1

REPORT INFORMATION
  Report Type: Spontaneous
  Country: FR (occurrence: FR)
  Receive Date: 20190311
  Receipt Date: 20190311
  Transmission Date: 20190418
  Serious: Yes (Hospitalization, Other)
  Sender: FDA-Public Use
  Company Number: FR-SUN PHARMACEUTICAL INDUSTRIES LTD-2019RR-201206

PATIENT
  Age: 36 Year
  Sex: Male

DRUGS (4)
  1. OXALIPLATIN. [Suspect]
     Active Substance: OXALIPLATIN
     Indication: ADENOCARCINOMA PANCREAS
     Dosage: AS NEOADJUVANT FOLFIRINOX CHEMOTHERAPY REGIMEN
     Route: 065
  2. FOLINIC ACID [Suspect]
     Active Substance: LEUCOVORIN
     Indication: ADENOCARCINOMA PANCREAS
     Dosage: AS NEOADJUVANT FOLFIRINOX CHEMOTHERAPY REGIMEN
     Route: 065
  3. 5-FLUOROURACIL [Suspect]
     Active Substance: FLUOROURACIL
     Indication: ADENOCARCINOMA PANCREAS
     Dosage: AS NEOADJUVANT FOLFIRINOX CHEMOTHERAPY REGIMEN
     Route: 065
  4. IRINOTECAN [Suspect]
     Active Substance: IRINOTECAN
     Indication: ADENOCARCINOMA PANCREAS
     Dosage: AS NEOADJUVANT FOLFIRINOX CHEMOTHERAPY REGIMEN
     Route: 065

REACTIONS (7)
  - Hiccups [Recovering/Resolving]
  - Nausea [Unknown]
  - Neutropenia [Unknown]
  - Insomnia [Unknown]
  - Vomiting [Unknown]
  - Decreased appetite [Unknown]
  - Weight decreased [Unknown]
